FAERS Safety Report 6371504-X (Version None)
Quarter: 2009Q3

REPORT INFORMATION
  Report Type: 
  Country: None (occurrence: None)
  Receive Date: 20090923
  Receipt Date: 20080115
  Transmission Date: 20100115
  Serious: Yes (Other)
  Sender: FDA-Public Use
  Company Number: US-ASTRAZENECA-2007UW25208

PATIENT
  Age: 16835 Day
  Sex: Male

DRUGS (10)
  1. SEROQUEL [Suspect]
     Indication: DEPRESSION
     Dosage: 200MG-50MG
     Route: 048
     Dates: start: 20040601
  2. SEROQUEL [Suspect]
     Indication: INSOMNIA
     Dosage: 200MG-50MG
     Route: 048
     Dates: start: 20040601
  3. SEROQUEL [Suspect]
     Indication: SLEEP DISORDER
     Dosage: 200MG-50MG
     Route: 048
     Dates: start: 20040601
  4. SEROQUEL [Suspect]
     Dosage: 50 MG-100 MG AT NIGHT
     Route: 048
     Dates: start: 20050622
  5. SEROQUEL [Suspect]
     Dosage: 50 MG-100 MG AT NIGHT
     Route: 048
     Dates: start: 20050622
  6. SEROQUEL [Suspect]
     Dosage: 50 MG-100 MG AT NIGHT
     Route: 048
     Dates: start: 20050622
  7. LANTUS [Concomitant]
     Route: 058
  8. PROTONIX [Concomitant]
     Route: 048
  9. LISINOPRIL [Concomitant]
     Route: 048
  10. TRAMADOL HCL [Concomitant]
     Route: 048

REACTIONS (4)
  - DIABETES MELLITUS [None]
  - DIABETIC KETOACIDOSIS [None]
  - TYPE 1 DIABETES MELLITUS [None]
  - TYPE 2 DIABETES MELLITUS [None]
